FAERS Safety Report 9365152 (Version 1)
Quarter: 2013Q2

REPORT INFORMATION
  Report Type: Spontaneous
  Country: US (occurrence: US)
  Receive Date: 20130624
  Receipt Date: 20130624
  Transmission Date: 20140414
  Serious: Yes (Hospitalization)
  Sender: FDA-Public Use
  Company Number: US-OPTIMER PHARMACEUTICALS, INC.-20130009

PATIENT
  Age: 38 Year
  Sex: Female
  Weight: 63.49 kg

DRUGS (1)
  1. DIFICID [Suspect]
     Indication: CLOSTRIDIAL INFECTION
     Dosage: 200 MG, BID
     Route: 048
     Dates: start: 201204, end: 2012

REACTIONS (5)
  - Urticaria [Unknown]
  - Abdominal pain [Unknown]
  - Clostridium difficile infection [Recovered/Resolved]
  - Disease recurrence [Recovered/Resolved]
  - Helicobacter infection [Unknown]
